FAERS Safety Report 25006280 (Version 2)
Quarter: 2025Q1

REPORT INFORMATION
  Report Type: Spontaneous
  Country: PL (occurrence: PL)
  Receive Date: 20250224
  Receipt Date: 20250312
  Transmission Date: 20250409
  Serious: Yes (Hospitalization)
  Sender: ABBVIE
  Company Number: PL-Adamed-2025-AER-00036

PATIENT
  Sex: Male

DRUGS (5)
  1. PENTASA [Suspect]
     Active Substance: MESALAMINE
     Indication: Hepatic neuroendocrine tumour
     Route: 048
  2. PREDNISONE [Suspect]
     Active Substance: PREDNISONE
     Indication: Hepatic neuroendocrine tumour
     Route: 048
  3. PREDNISONE [Suspect]
     Active Substance: PREDNISONE
     Indication: Hepatic neuroendocrine tumour
     Dosage: IN THE MORNING WITH A DOSE REDUCTION
     Route: 048
  4. ENOXAPARIN SODIUM [Suspect]
     Active Substance: ENOXAPARIN SODIUM
     Indication: Hepatic neuroendocrine tumour
     Route: 058
  5. CARBOPLATIN [Suspect]
     Active Substance: CARBOPLATIN
     Indication: Renal failure
     Route: 065

REACTIONS (2)
  - Ocular icterus [Unknown]
  - Chromaturia [Unknown]
